FAERS Safety Report 16492795 (Version 1)
Quarter: 2019Q2

REPORT INFORMATION
  Report Type: Spontaneous
  Country: US (occurrence: US)
  Receive Date: 20190628
  Receipt Date: 20190628
  Transmission Date: 20190711
  Serious: No
  Sender: FDA-Public Use
  Company Number: US-INDIVIOR LIMITED-INDV-119478-2019

PATIENT
  Age: 43 Year
  Sex: Female

DRUGS (2)
  1. SUBOXONE [Suspect]
     Active Substance: BUPRENORPHINE HYDROCHLORIDE\NALOXONE HYDROCHLORIDE
     Indication: PRODUCT USED FOR UNKNOWN INDICATION
     Dosage: HALF MORNING AND HALF AFTERNOON
     Route: 065
     Dates: start: 20190508, end: 20190508
  2. SUBLOCADE [Suspect]
     Active Substance: BUPRENORPHINE
     Indication: DRUG DEPENDENCE
     Dosage: 300 MILLIGRAM, QMO
     Route: 058
     Dates: start: 20190506

REACTIONS (9)
  - Anxiety [Not Recovered/Not Resolved]
  - Arthralgia [Unknown]
  - Inappropriate schedule of product administration [Recovered/Resolved]
  - Feeling abnormal [Not Recovered/Not Resolved]
  - Wrong technique in product usage process [Recovered/Resolved]
  - Emotional disorder [Not Recovered/Not Resolved]
  - Drug withdrawal syndrome [Unknown]
  - Drug dependence [Unknown]
  - Neuropathy peripheral [Not Recovered/Not Resolved]

NARRATIVE: CASE EVENT DATE: 201905
